FAERS Safety Report 8427399-3 (Version None)
Quarter: 2012Q2

REPORT INFORMATION
  Report Type: 
  Country: None (occurrence: None)
  Receive Date: 20120611
  Receipt Date: 20120530
  Transmission Date: 20120825
  Serious: Yes (Hospitalization, Other)
  Sender: FDA-Public Use
  Company Number: US-MERCK-1203USA02843

PATIENT
  Age: 58 Year
  Sex: Female

DRUGS (9)
  1. FOSAMAX [Suspect]
     Indication: OSTEOPENIA
     Route: 048
     Dates: start: 19990201, end: 20091001
  2. FOSAMAX [Suspect]
     Route: 048
     Dates: start: 19990201, end: 20091001
  3. FOSAMAX [Suspect]
     Route: 048
     Dates: start: 20070801
  4. FOSAMAX [Suspect]
     Route: 048
     Dates: start: 20070801
  5. FOSAMAX [Suspect]
     Indication: BONE LOSS
     Route: 048
     Dates: start: 19990201, end: 20091001
  6. BONIVA [Suspect]
     Indication: OSTEOPENIA
     Route: 065
     Dates: start: 19990201, end: 20091001
  7. BONIVA [Suspect]
     Indication: BONE LOSS
     Route: 065
     Dates: start: 19990201, end: 20091001
  8. FOSAMAX [Suspect]
     Route: 048
     Dates: start: 19990201, end: 20091001
  9. CORTICOSTEROIDS (UNSPECIFIED) [Concomitant]
     Route: 065
     Dates: start: 19900101

REACTIONS (77)
  - EPILEPSY [None]
  - ARTHROPATHY [None]
  - CEREBROVASCULAR ACCIDENT [None]
  - ATRIAL FIBRILLATION [None]
  - CEREBRAL SMALL VESSEL ISCHAEMIC DISEASE [None]
  - INFLAMMATORY BOWEL DISEASE [None]
  - PULMONARY HYPERTENSION [None]
  - OSTEOPOROSIS [None]
  - ORTHOSTATIC HYPOTENSION [None]
  - CUSHINGOID [None]
  - DRUG DEPENDENCE [None]
  - THORACIC VERTEBRAL FRACTURE [None]
  - PRESYNCOPE [None]
  - CONSTIPATION [None]
  - LUMBAR RADICULOPATHY [None]
  - HEADACHE [None]
  - SJOGREN'S SYNDROME [None]
  - WEIGHT INCREASED [None]
  - ASTHENIA [None]
  - MALAISE [None]
  - ANTIPHOSPHOLIPID ANTIBODIES POSITIVE [None]
  - DIASTOLIC DYSFUNCTION [None]
  - SYSTEMIC LUPUS ERYTHEMATOSUS [None]
  - SPINAL DISORDER [None]
  - OSTEOARTHRITIS [None]
  - SPONDYLOLISTHESIS [None]
  - DYSPNOEA [None]
  - CEREBRAL ATROPHY [None]
  - SYMPATHETIC POSTERIOR CERVICAL SYNDROME [None]
  - JAW FRACTURE [None]
  - INSOMNIA [None]
  - MUSCLE TWITCHING [None]
  - INTERVERTEBRAL DISC DEGENERATION [None]
  - VERTEBROBASILAR INSUFFICIENCY [None]
  - VASCULITIS [None]
  - ARTHRALGIA [None]
  - NECK INJURY [None]
  - DENTURE WEARER [None]
  - FEMUR FRACTURE [None]
  - OSTEONECROSIS OF JAW [None]
  - ANXIETY [None]
  - SPINAL OSTEOARTHRITIS [None]
  - BACK PAIN [None]
  - CONDITION AGGRAVATED [None]
  - TOOTH DISORDER [None]
  - VENTRICULAR EXTRASYSTOLES [None]
  - LUMBAR SPINAL STENOSIS [None]
  - EMPHYSEMA [None]
  - SCOLIOSIS [None]
  - HYPERCOAGULATION [None]
  - POST LAMINECTOMY SYNDROME [None]
  - JOINT CREPITATION [None]
  - NECK PAIN [None]
  - MYOCARDIAL ISCHAEMIA [None]
  - INTERVERTEBRAL DISC PROTRUSION [None]
  - DIVERTICULUM [None]
  - SYNCOPE [None]
  - PARTIAL SEIZURES [None]
  - ARTERIOSCLEROSIS [None]
  - CEREBRAL ARTERY OCCLUSION [None]
  - LOW TURNOVER OSTEOPATHY [None]
  - BURSITIS [None]
  - FATIGUE [None]
  - SPINAL MENINGIOMA BENIGN [None]
  - ROAD TRAFFIC ACCIDENT [None]
  - MIGRAINE [None]
  - GASTROOESOPHAGEAL REFLUX DISEASE [None]
  - EYE INFLAMMATION [None]
  - SPINAL FRACTURE [None]
  - BLOOD CHOLESTEROL INCREASED [None]
  - INTERVERTEBRAL DISC DISPLACEMENT [None]
  - HEAD INJURY [None]
  - RIB FRACTURE [None]
  - HYPOAESTHESIA [None]
  - FOOT FRACTURE [None]
  - FALL [None]
  - DEPRESSION [None]
